FAERS Safety Report 17362473 (Version 1)
Quarter: 2020Q1

REPORT INFORMATION
  Report Type: Spontaneous
  Country: US (occurrence: US)
  Receive Date: 20200117
  Receipt Date: 20200117
  Transmission Date: 20200409
  Serious: No
  Sender: FDA-Public Use
  Company Number: None

PATIENT
  Sex: Female

DRUGS (2)
  1. COSENTYX [Suspect]
     Active Substance: SECUKINUMAB
     Indication: PRODUCT USED FOR UNKNOWN INDICATION
     Dosage: 150MG QWWKLY X 5 WEEKS SC
     Route: 058
     Dates: start: 20191120, end: 20191225
  2. COSENTYX [Suspect]
     Active Substance: SECUKINUMAB
     Indication: MYOCARDITIS
     Dosage: 150MG QWWKLY X 5 WEEKS SC
     Route: 058
     Dates: start: 20191120, end: 20191225

REACTIONS (1)
  - Skin disorder [None]
